FAERS Safety Report 13237795 (Version 1)
Quarter: 2017Q1

REPORT INFORMATION
  Report Type: Report from Study
  Country: CN (occurrence: CN)
  Receive Date: 20170216
  Receipt Date: 20170216
  Transmission Date: 20170428
  Serious: Yes (Death)
  Sender: FDA-Public Use
  Company Number: CN-ROCHE-1824882

PATIENT
  Sex: Male
  Weight: 59 kg

DRUGS (1)
  1. AVASTIN [Suspect]
     Active Substance: BEVACIZUMAB
     Indication: RECTAL CANCER
     Route: 041
     Dates: start: 20150729

REACTIONS (3)
  - Platelet count decreased [Unknown]
  - Coagulopathy [Fatal]
  - Asthenia [Unknown]
